FAERS Safety Report 6214039-7 (Version None)
Quarter: 2009Q2

REPORT INFORMATION
  Report Type: 
  Country: None (occurrence: None)
  Receive Date: 20090601
  Receipt Date: 20090601
  Transmission Date: 20091009
  Serious: Yes (Other)
  Sender: FDA-Public Use
  Company Number: None

PATIENT
  Age: 78 Year
  Sex: Male
  Weight: 101.1521 kg

DRUGS (1)
  1. XYZAL [Suspect]
     Indication: MULTIPLE ALLERGIES
     Dosage: 5 MG DAILY PO
     Route: 048
     Dates: start: 20090528, end: 20090529

REACTIONS (5)
  - ABDOMINAL DISTENSION [None]
  - ABDOMINAL PAIN [None]
  - POLLAKIURIA [None]
  - URINARY RETENTION [None]
  - URINE OUTPUT DECREASED [None]
